FAERS Safety Report 14418430 (Version 2)
Quarter: 2018Q2

REPORT INFORMATION
  Report Type: Other
  Country: US (occurrence: US)
  Receive Date: 20180122
  Receipt Date: 20180525
  Transmission Date: 20180711
  Serious: Yes (Other)
  Sender: FDA-Public Use
  Company Number: US-INTERCEPT-PMOCA2017001396

PATIENT

DRUGS (2)
  1. OCALIVA [Suspect]
     Active Substance: OBETICHOLIC ACID
     Dosage: 10 MG, QD
     Route: 048
     Dates: end: 20180430
  2. OCALIVA [Suspect]
     Active Substance: OBETICHOLIC ACID
     Indication: PRIMARY BILIARY CHOLANGITIS
     Dosage: 5 MG, QD
     Route: 048
     Dates: start: 201705

REACTIONS (10)
  - Viral infection [Unknown]
  - Disease progression [Unknown]
  - Autoimmune disorder [Unknown]
  - Arthralgia [Recovering/Resolving]
  - Drug dose omission [Unknown]
  - Respiratory disorder [Unknown]
  - Urinary tract disorder [Unknown]
  - Fatigue [Unknown]
  - Hepatic enzyme increased [Unknown]
  - Pruritus [Recovering/Resolving]

NARRATIVE: CASE EVENT DATE: 20171104
